FAERS Safety Report 6204843-3 (Version None)
Quarter: 2009Q2

REPORT INFORMATION
  Report Type: 
  Country: None (occurrence: None)
  Receive Date: 20090522
  Receipt Date: 20090402
  Transmission Date: 20091009
  Serious: Yes (Other)
  Sender: FDA-Public Use
  Company Number: ADE# 09-046

PATIENT
  Sex: Male
  Weight: 90.7194 kg

DRUGS (9)
  1. PHENYTOIN SODIUM [Suspect]
     Indication: EPILEPSY
     Dosage: 4 CAPSULES AT NIGHT
  2. FIORICET W/ CODEINE [Concomitant]
  3. CLONAZEPAM [Concomitant]
  4. CITALOPRAM HYDROBROMIDE [Concomitant]
  5. ADVAIR HFA [Concomitant]
  6. SPIRIVA [Concomitant]
  7. RESCUE INHALER [Concomitant]
  8. SINGULAIR [Concomitant]
  9. FLUTICASONE PROPIONATE [Concomitant]

REACTIONS (18)
  - ANTICONVULSANT DRUG LEVEL INCREASED [None]
  - ARTHRALGIA [None]
  - BACK PAIN [None]
  - BLOOD SODIUM INCREASED [None]
  - BODY TEMPERATURE DECREASED [None]
  - BONE PAIN [None]
  - CHEST PAIN [None]
  - DRUG TOXICITY [None]
  - FATIGUE [None]
  - HEPATIC FUNCTION ABNORMAL [None]
  - HYPONATRAEMIA [None]
  - IMPAIRED WORK ABILITY [None]
  - INFLUENZA LIKE ILLNESS [None]
  - LETHARGY [None]
  - NAUSEA [None]
  - PRODUCT SUBSTITUTION ISSUE [None]
  - SWELLING FACE [None]
  - VOMITING [None]
